FAERS Safety Report 4533602-2 (Version None)
Quarter: 2004Q4

REPORT INFORMATION
  Report Type: 
  Country: None (occurrence: None)
  Receive Date: 20041203
  Receipt Date: 20031120
  Transmission Date: 20050328
  Serious: Yes (Hospitalization, Other)
  Sender: FDA-Public Use
  Company Number: 2003119628

PATIENT
  Age: 70 Year
  Sex: Male
  Weight: 64.8644 kg

DRUGS (4)
  1. VIAGRA [Suspect]
     Indication: ERECTILE DYSFUNCTION
     Dosage: 100 MG (PRN), ORAL
     Route: 048
     Dates: start: 20000101, end: 20031113
  2. CHLORDIAZEPOXIDE [Concomitant]
  3. PROPRANOLOL [Concomitant]
  4. ALL OTHER THERAPEUTIC PRODUCTS (ALL OTHER THERAPEUTIC PRODUCTS) [Concomitant]

REACTIONS (9)
  - BALANCE DISORDER [None]
  - BLOOD PRESSURE INCREASED [None]
  - CEREBROVASCULAR ACCIDENT [None]
  - COGNITIVE DISORDER [None]
  - COMMUNICATION DISORDER [None]
  - DIFFICULTY IN WALKING [None]
  - DIZZINESS [None]
  - HEADACHE [None]
  - VISUAL DISTURBANCE [None]
